FAERS Safety Report 4759041-7 (Version None)
Quarter: 2005Q3

REPORT INFORMATION
  Report Type: 
  Country: None (occurrence: None)
  Receive Date: 20050901
  Receipt Date: 20050627
  Transmission Date: 20060218
  Serious: Yes (Hospitalization)
  Sender: FDA-Public Use
  Company Number: GB-GLAXOSMITHKLINE-B0386118A

PATIENT
  Age: 72 Year
  Sex: Female
  Weight: 55.5 kg

DRUGS (12)
  1. ROSIGLITAZONE [Suspect]
     Indication: RHEUMATOID ARTHRITIS
     Dosage: 8MG PER DAY
     Route: 048
     Dates: start: 20050318
  2. METHOTREXATE [Concomitant]
     Indication: RHEUMATOID ARTHRITIS
     Dosage: 15MG WEEKLY
     Route: 048
     Dates: start: 20001201, end: 20050618
  3. NAPROXEN [Concomitant]
     Indication: RHEUMATOID ARTHRITIS
  4. FOLIC ACID [Concomitant]
     Indication: PROPHYLAXIS
  5. ERGOCALCIFEROL [Concomitant]
     Indication: OSTEOPOROSIS
  6. ALENDRONATE [Concomitant]
     Indication: OSTEOPOROSIS
  7. ATORVASTATIN CALCIUM [Concomitant]
     Indication: BLOOD CHOLESTEROL INCREASED
  8. BENDROFLUAZIDE [Concomitant]
     Indication: HYPERTENSION
  9. ADALAT [Concomitant]
     Indication: HYPERTENSION
  10. ENALAPRIL [Concomitant]
     Indication: HYPERTENSION
  11. B12 [Concomitant]
     Indication: VITAMIN B12 DEFICIENCY
  12. FERROUS SULFATE TAB [Concomitant]

REACTIONS (7)
  - BRONCHIECTASIS [None]
  - LOWER RESPIRATORY TRACT INFECTION [None]
  - OESOPHAGEAL DILATATION [None]
  - PNEUMONIA [None]
  - RED BLOOD CELL SEDIMENTATION RATE INCREASED [None]
  - WEIGHT DECREASED [None]
  - WHITE BLOOD CELL COUNT INCREASED [None]
